FAERS Safety Report 19616670 (Version 1)
Quarter: 2021Q3

REPORT INFORMATION
  Report Type: Spontaneous
  Country: US (occurrence: US)
  Receive Date: 20210727
  Receipt Date: 20210727
  Transmission Date: 20211014
  Serious: No
  Sender: FDA-Public Use
  Company Number: US-ABBVIE-21K-163-3831151-00

PATIENT
  Sex: Male

DRUGS (1)
  1. SYNTHROID [Suspect]
     Active Substance: LEVOTHYROXINE SODIUM
     Indication: PRODUCT USED FOR UNKNOWN INDICATION
     Route: 048

REACTIONS (8)
  - Feeling abnormal [Unknown]
  - Hypotension [Unknown]
  - Palpitations [Unknown]
  - Anger [Unknown]
  - Emotional distress [Unknown]
  - Dizziness [Unknown]
  - Hyperhidrosis [Unknown]
  - Chills [Unknown]
